FAERS Safety Report 22609267 (Version 1)
Quarter: 2023Q2

REPORT INFORMATION
  Report Type: Spontaneous
  Country: JP (occurrence: JP)
  Receive Date: 20230616
  Receipt Date: 20230616
  Transmission Date: 20230721
  Serious: Yes (Hospitalization, Other)
  Sender: FDA-Public Use
  Company Number: JP-GLAXOSMITHKLINE-JP2023JPN082548

PATIENT

DRUGS (8)
  1. VALTREX [Suspect]
     Active Substance: VALACYCLOVIR HYDROCHLORIDE
     Indication: Herpes zoster
     Dosage: 1000 MG, TID
     Route: 048
     Dates: start: 20230413, end: 20230416
  2. CELECOXIB [Suspect]
     Active Substance: CELECOXIB
     Dosage: UNK
  3. TENELIA OD [Concomitant]
     Dosage: UNK
  4. AMLODIPINE BESYLATE\CANDESARTAN CILEXETIL [Concomitant]
     Active Substance: AMLODIPINE BESYLATE\CANDESARTAN CILEXETIL
     Dosage: UNK
  5. PRAVASTATIN NA TABLETS [Concomitant]
     Dosage: UNK
  6. METFORMIN [Concomitant]
     Active Substance: METFORMIN HYDROCHLORIDE
     Dosage: UNK
  7. LYRICA [Concomitant]
     Active Substance: PREGABALIN
     Dosage: UNK
     Dates: start: 20230413
  8. ARASENA-A OINTMENT [Concomitant]
     Dosage: UNK

REACTIONS (11)
  - Acute kidney injury [Unknown]
  - Altered state of consciousness [Recovering/Resolving]
  - Renal failure [Unknown]
  - Renal impairment [Unknown]
  - Toxic encephalopathy [Unknown]
  - Asthenia [Unknown]
  - Dyslalia [Unknown]
  - Movement disorder [Unknown]
  - Dysarthria [Unknown]
  - Speech disorder [Unknown]
  - Mastication disorder [Unknown]

NARRATIVE: CASE EVENT DATE: 20230417
